FAERS Safety Report 20966735 (Version 1)
Quarter: 2022Q2

REPORT INFORMATION
  Report Type: Spontaneous
  Country: US (occurrence: None)
  Receive Date: 20220615
  Receipt Date: 20220615
  Transmission Date: 20220721
  Serious: Yes (Other)
  Sender: FDA-Public Use
  Company Number: None

PATIENT
  Age: 36 Year
  Sex: Female
  Weight: 107.5 kg

DRUGS (13)
  1. BEBTELOVIMAB [Suspect]
     Active Substance: BEBTELOVIMAB
     Indication: COVID-19
     Dosage: OTHER FREQUENCY : ONCE;?
     Route: 042
     Dates: start: 20220525, end: 20220525
  2. ACETAMINOPHEN [Concomitant]
     Active Substance: ACETAMINOPHEN
  3. ALBUTEROL [Concomitant]
     Active Substance: ALBUTEROL
  4. APIXABAN [Concomitant]
     Active Substance: APIXABAN
  5. CITALOPRAM [Concomitant]
     Active Substance: CITALOPRAM HYDROBROMIDE
  6. CLONIDINE [Concomitant]
     Active Substance: CLONIDINE
  7. GABAPENTIN [Concomitant]
     Active Substance: GABAPENTIN
  8. LITHIUM [Concomitant]
     Active Substance: LITHIUM
  9. PRAZOSIN [Concomitant]
     Active Substance: PRAZOSIN
  10. PREDNISONE [Concomitant]
     Active Substance: PREDNISONE
  11. PROMETHAZINE [Concomitant]
     Active Substance: PROMETHAZINE HYDROCHLORIDE
  12. SUMATRIPTAN [Concomitant]
     Active Substance: SUMATRIPTAN
  13. TRAZODONE [Concomitant]
     Active Substance: TRAZODONE HYDROCHLORIDE

REACTIONS (15)
  - Infusion related reaction [None]
  - Urinary incontinence [None]
  - Autoscopy [None]
  - Nausea [None]
  - Flank pain [None]
  - Back pain [None]
  - Pain in extremity [None]
  - Livedo reticularis [None]
  - Pruritus [None]
  - Muscular weakness [None]
  - Dysstasia [None]
  - Dizziness [None]
  - Chest discomfort [None]
  - Throat tightness [None]
  - Throat irritation [None]

NARRATIVE: CASE EVENT DATE: 20220525
